FAERS Safety Report 5336998-7 (Version None)
Quarter: 2007Q2

REPORT INFORMATION
  Report Type: 
  Country: None (occurrence: None)
  Receive Date: 20070524
  Receipt Date: 20070511
  Transmission Date: 20071010
  Serious: Yes (Death)
  Sender: FDA-Public Use
  Company Number: GXKR2007IT04278

PATIENT
  Age: 69 Year
  Sex: Male

DRUGS (1)
  1. METHYLPREDNISOLONE [Suspect]
     Indication: COOMBS POSITIVE HAEMOLYTIC ANAEMIA
     Dosage: SEE IMAGE

REACTIONS (12)
  - HEPATIC FAILURE [None]
  - HISTIOCYTOSIS HAEMATOPHAGIC [None]
  - HUMAN HERPESVIRUS 8 INFECTION [None]
  - HYPERGLYCAEMIA [None]
  - HYPONATRAEMIA [None]
  - LUNG INFILTRATION [None]
  - METABOLIC DISORDER [None]
  - NO THERAPEUTIC RESPONSE [None]
  - PANCYTOPENIA [None]
  - PYREXIA [None]
  - SERUM FERRITIN INCREASED [None]
  - SPLENOMEGALY [None]
